FAERS Safety Report 8051522-6 (Version None)
Quarter: 2012Q1

REPORT INFORMATION
  Report Type: 
  Country: None (occurrence: None)
  Receive Date: 20120117
  Receipt Date: 20120112
  Transmission Date: 20120608
  Serious: No
  Sender: FDA-Public Use
  Company Number: US-BAYER-2012-005084

PATIENT
  Sex: Female

DRUGS (1)
  1. ALEVE (CAPLET) [Suspect]
     Dosage: 2 TAB TWICE DAILY
     Route: 048
     Dates: start: 20120112, end: 20120112

REACTIONS (2)
  - DIARRHOEA [None]
  - VOMITING [None]
